FAERS Safety Report 9885977 (Version 2)
Quarter: 2014Q1

REPORT INFORMATION
  Report Type: Report from Study
  Country: US (occurrence: US)
  Receive Date: 20140210
  Receipt Date: 20140210
  Transmission Date: 20141002
  Serious: Yes (Other)
  Sender: FDA-Public Use
  Company Number: US-ABBVIE-13P-163-1086126-00

PATIENT
  Age: 42 Year
  Sex: Female

DRUGS (3)
  1. NORVIR [Suspect]
     Indication: ANTIRETROVIRAL THERAPY
     Route: 048
  2. REYATAZ [Suspect]
     Indication: ANTIRETROVIRAL THERAPY
     Route: 048
  3. EPZICOM [Suspect]
     Indication: ANTIRETROVIRAL THERAPY
     Dosage: TAB/CAPS
     Route: 048

REACTIONS (1)
  - Abortion spontaneous [Unknown]
